FAERS Safety Report 14818660 (Version 2)
Quarter: 2019Q4

REPORT INFORMATION
  Report Type: Spontaneous
  Country: US (occurrence: US)
  Receive Date: 20180427
  Receipt Date: 20191011
  Transmission Date: 20200122
  Serious: No
  Sender: FDA-Public Use
  Company Number: US-PFIZER INC-2018169785

PATIENT
  Age: 7 Decade
  Sex: Female
  Weight: 85.7 kg

DRUGS (2)
  1. XELJANZ [Suspect]
     Active Substance: TOFACITINIB CITRATE
     Dosage: 5 MG, 2X/DAY
     Route: 048
  2. XELJANZ [Suspect]
     Active Substance: TOFACITINIB CITRATE
     Indication: RHEUMATOID ARTHRITIS
     Dosage: UNK

REACTIONS (8)
  - Nasal dryness [Not Recovered/Not Resolved]
  - Dyspnoea [Not Recovered/Not Resolved]
  - Ear discomfort [Not Recovered/Not Resolved]
  - Cough [Not Recovered/Not Resolved]
  - Nasopharyngitis [Not Recovered/Not Resolved]
  - Dizziness [Unknown]
  - Balance disorder [Unknown]
  - Sinus disorder [Not Recovered/Not Resolved]

NARRATIVE: CASE EVENT DATE: 2018
